FAERS Safety Report 7933632-4 (Version None)
Quarter: 2011Q4

REPORT INFORMATION
  Report Type: 
  Country: None (occurrence: None)
  Receive Date: 20111118
  Receipt Date: 20111108
  Transmission Date: 20120403
  Serious: Yes (Death)
  Sender: FDA-Public Use
  Company Number: ADR-2011-11531

PATIENT
  Age: 60 Year
  Sex: Male

DRUGS (4)
  1. BACLOFEN [Suspect]
     Indication: NEOPLASM MALIGNANT
  2. BUPIVACAINE HCL [Concomitant]
  3. DILAUDID [Concomitant]
  4. RDROPERIDOL [Concomitant]

REACTIONS (2)
  - MALIGNANT MELANOMA [None]
  - CONDITION AGGRAVATED [None]
